FAERS Safety Report 5528829-7 (Version None)
Quarter: 2007Q4

REPORT INFORMATION
  Report Type: 
  Country: None (occurrence: None)
  Receive Date: 20071114
  Receipt Date: 20070803
  Transmission Date: 20080405
  Serious: Yes (Hospitalization)
  Sender: FDA-Public Use
  Company Number: US-2007-028849

PATIENT
  Age: 56 Year
  Sex: Male

DRUGS (2)
  1. ULTRAVIST (PHARMACY BULK) [Suspect]
     Indication: COMPUTERISED TOMOGRAM
     Dosage: 100 ML, POWER INJECTOR 3 ML/SEC, INTRAVENOUS
     Route: 042
     Dates: start: 20070724, end: 20070724
  2. APO-METFORMIN (METFORMIN HYDROCHLORIDE) [Concomitant]

REACTIONS (3)
  - CONFUSIONAL STATE [None]
  - HYPERHIDROSIS [None]
  - LOSS OF CONSCIOUSNESS [None]
